FAERS Safety Report 5505666-0 (Version None)
Quarter: 2007Q4

REPORT INFORMATION
  Report Type: 
  Country: None (occurrence: None)
  Receive Date: 20071102
  Receipt Date: 20071024
  Transmission Date: 20080405
  Serious: Yes (Other)
  Sender: FDA-Public Use
  Company Number: FR-ABBOTT-07P-056-0421923-00

PATIENT
  Age: 38 Year
  Sex: Female

DRUGS (4)
  1. VALPROATE DE SODIUM WINTHROP LP TABLET PR [Suspect]
     Indication: EPILEPSY
     Route: 048
     Dates: start: 20070401
  2. ERGENYL CHRONO [Concomitant]
     Indication: EPILEPSY
     Route: 048
     Dates: end: 20071001
  3. ERGENYL CHRONO [Concomitant]
     Route: 048
     Dates: start: 20071001
  4. SEVERAL CONCOMITANT DRUGS NOS [Concomitant]
     Indication: DRUG USE FOR UNKNOWN INDICATION

REACTIONS (2)
  - EPILEPTIC AURA [None]
  - THERAPEUTIC RESPONSE UNEXPECTED WITH DRUG SUBSTITUTION [None]
